FAERS Safety Report 24331464 (Version 2)
Quarter: 2024Q4

REPORT INFORMATION
  Report Type: Report from Study
  Country: CR (occurrence: CR)
  Receive Date: 20240918
  Receipt Date: 20241021
  Transmission Date: 20250115
  Serious: Yes (Hospitalization)
  Sender: ALEXION PHARMACEUTICALS
  Company Number: 2024A212681

PATIENT
  Age: 37 Year

DRUGS (4)
  1. FASENRA [Suspect]
     Active Substance: BENRALIZUMAB
     Indication: Asthma
     Dosage: UNK
  2. FASENRA [Suspect]
     Active Substance: BENRALIZUMAB
     Dosage: UNK
  3. FASENRA [Suspect]
     Active Substance: BENRALIZUMAB
     Dosage: UNK
  4. FASENRA [Suspect]
     Active Substance: BENRALIZUMAB
     Dosage: UNK

REACTIONS (4)
  - Pain [Unknown]
  - Oral mucosal blistering [Unknown]
  - Chest discomfort [Unknown]
  - Pyrexia [Unknown]
